FAERS Safety Report 4430577-1 (Version None)
Quarter: 2004Q3

REPORT INFORMATION
  Report Type: 
  Country: None (occurrence: None)
  Receive Date: 20040818
  Receipt Date: 20040809
  Transmission Date: 20050211
  Serious: Yes (Death, Hospitalization)
  Sender: FDA-Public Use
  Company Number: 2004-0007220

PATIENT
  Age: 51 Year
  Sex: Female

DRUGS (1)
  1. ADEFOVIR DIPIVOXIL (ADEFOVIR DIPIVOXIL ) [Suspect]
     Indication: HEPATITIS B
     Dosage: 10 MG, 1 IN 1 D, ORAL
     Route: 048
     Dates: start: 20030910

REACTIONS (3)
  - HAEMORRHAGE INTRACRANIAL [None]
  - INTRACRANIAL HAEMATOMA [None]
  - LOSS OF CONSCIOUSNESS [None]
